FAERS Safety Report 4662532-0 (Version None)
Quarter: 2005Q2

REPORT INFORMATION
  Report Type: 
  Country: None (occurrence: None)
  Receive Date: 20050513
  Receipt Date: 20050513
  Transmission Date: 20051028
  Serious: Yes (Congenital Anomaly)
  Sender: FDA-Public Use
  Company Number: None

PATIENT
  Age: 32 Year
  Sex: Female
  Weight: 58.9676 kg

DRUGS (3)
  1. METFORMIN  500 MG/TAB [Suspect]
     Indication: ANOVULATORY CYCLE
     Dosage: 500 MG BID ORAL
     Route: 048
     Dates: start: 20040401, end: 20050304
  2. METFORMIN  500 MG/TAB [Suspect]
     Indication: OLIGOMENORRHOEA
     Dosage: 500 MG BID ORAL
     Route: 048
     Dates: start: 20040401, end: 20050304
  3. METFORMIN  500 MG/TAB [Suspect]
     Indication: POLYCYSTIC OVARIES
     Dosage: 500 MG BID ORAL
     Route: 048
     Dates: start: 20040401, end: 20050304

REACTIONS (3)
  - CLEFT LIP [None]
  - DRUG EXPOSURE DURING PREGNANCY [None]
  - PREGNANCY [None]
